FAERS Safety Report 11749004 (Version 1)
Quarter: 2015Q4

REPORT INFORMATION
  Report Type: Report from Study
  Country: US (occurrence: US)
  Receive Date: 20151118
  Receipt Date: 20151118
  Transmission Date: 20160304
  Serious: Yes (Other)
  Sender: FDA-Public Use
  Company Number: US-ABBVIE-15K-163-1498662-00

PATIENT
  Age: 51 Year
  Sex: Male
  Weight: 140.74 kg

DRUGS (2)
  1. PROSTATE HEALTH [Concomitant]
     Indication: PRODUCT USED FOR UNKNOWN INDICATION
  2. HUMIRA [Suspect]
     Active Substance: ADALIMUMAB
     Indication: PSORIASIS
     Route: 058
     Dates: end: 201509

REACTIONS (5)
  - Hypertension [Recovered/Resolved]
  - Chest pain [Recovered/Resolved]
  - Blood cholesterol increased [Unknown]
  - Carotid artery occlusion [Recovered/Resolved]
  - Psoriasis [Not Recovered/Not Resolved]

NARRATIVE: CASE EVENT DATE: 2014
